FAERS Safety Report 6491080-0 (Version None)
Quarter: 2009Q4

REPORT INFORMATION
  Report Type: 
  Country: None (occurrence: None)
  Receive Date: 20091211
  Receipt Date: 20091201
  Transmission Date: 20100525
  Serious: Yes (Hospitalization)
  Sender: FDA-Public Use
  Company Number: US-PFIZER INC-2009306769

PATIENT
  Sex: Male
  Weight: 73.5 kg

DRUGS (8)
  1. NICOTROL [Suspect]
     Dates: start: 20090317, end: 20090301
  2. PLAVIX [Concomitant]
     Dosage: UNK
  3. NORVASC [Concomitant]
     Dosage: UNK
  4. PEPCID [Concomitant]
  5. MORPHINE HYDROCHLORIDE [Concomitant]
     Dosage: 150 MG, 4X/DAY
  6. CELEBREX [Concomitant]
     Dosage: FREQUENCY: 2X/DAY,
  7. SINGULAIR [Concomitant]
  8. EFFEXOR XR [Concomitant]
     Dosage: FREQUENCY: 2X/DAY,

REACTIONS (2)
  - ARTHRALGIA [None]
  - DRUG INEFFECTIVE [None]
